FAERS Safety Report 24998892 (Version 3)
Quarter: 2025Q3

REPORT INFORMATION
  Report Type: Spontaneous
  Country: US (occurrence: US)
  Receive Date: 20250222
  Receipt Date: 20250828
  Transmission Date: 20251020
  Serious: Yes (Hospitalization, Other)
  Sender: SANOFI AVENTIS
  Company Number: US-SA-2025SA046099

PATIENT
  Age: 70 Year
  Sex: Female

DRUGS (11)
  1. DUPIXENT [Suspect]
     Active Substance: DUPILUMAB
     Indication: Asthma
     Dosage: 300 MG, QOW
     Route: 058
  2. FLUTICASONE [Concomitant]
     Active Substance: FLUTICASONE
  3. LEVOTHYROXINE [Concomitant]
     Active Substance: LEVOTHYROXINE
  4. ATORVASTATIN [Concomitant]
     Active Substance: ATORVASTATIN
  5. GABAPENTIN [Concomitant]
     Active Substance: GABAPENTIN
  6. HYDROXYZINE [Concomitant]
     Active Substance: HYDROXYZINE HYDROCHLORIDE
  7. MONTELUKAST [Concomitant]
     Active Substance: MONTELUKAST
  8. PANTOPRAZOLE [Concomitant]
     Active Substance: PANTOPRAZOLE
  9. ASPIRIN [Concomitant]
     Active Substance: ASPIRIN
  10. BUPROPION HYDROCHLORIDE [Concomitant]
     Active Substance: BUPROPION HYDROCHLORIDE
  11. BUPROPION HYDROCHLORIDE [Concomitant]
     Active Substance: BUPROPION HYDROCHLORIDE

REACTIONS (6)
  - Transient ischaemic attack [Not Recovered/Not Resolved]
  - Pelvic fracture [Not Recovered/Not Resolved]
  - Fall [Not Recovered/Not Resolved]
  - Decreased interest [Not Recovered/Not Resolved]
  - Depressed mood [Not Recovered/Not Resolved]
  - Disturbance in attention [Not Recovered/Not Resolved]

NARRATIVE: CASE EVENT DATE: 20250501
